FAERS Safety Report 7949098-4 (Version None)
Quarter: 2011Q4

REPORT INFORMATION
  Report Type: 
  Country: None (occurrence: None)
  Receive Date: 20111125
  Receipt Date: 20111114
  Transmission Date: 20120403
  Serious: Yes (Hospitalization)
  Sender: FDA-Public Use
  Company Number: US-2011-10231

PATIENT
  Age: 53 Year
  Sex: Male

DRUGS (12)
  1. ETOPOSIDE [Concomitant]
  2. CEPHALEXIN [Concomitant]
  3. OXYCONTIN [Concomitant]
  4. OXYCONTIN [Concomitant]
  5. POTASSIUM CHLORIDE [Concomitant]
  6. BUSULFAN [Suspect]
     Indication: STEM CELL TRANSPLANT
     Dosage: 77 MG MILLIGRAM(S), DAILY DOSE, INTRAVENOUS; 367  MG MILLIGRAM(S), DAILY DOSE, INTRAVENOUS
     Route: 042
     Dates: start: 20110314, end: 20110317
  7. BUSULFAN [Suspect]
     Indication: STEM CELL TRANSPLANT
     Dosage: 77 MG MILLIGRAM(S), DAILY DOSE, INTRAVENOUS; 367  MG MILLIGRAM(S), DAILY DOSE, INTRAVENOUS
     Route: 042
     Dates: start: 20110311, end: 20110311
  8. CYCLOPHOSPHAMIDE [Concomitant]
  9. PRILOSEC (OMEPRAZOLE MAGNESIUM) [Concomitant]
  10. REGLAN [Concomitant]
  11. MAGNESIUM OXIDE [Concomitant]
  12. DOCUSATE [Concomitant]

REACTIONS (6)
  - BLISTER [None]
  - SKIN TOXICITY [None]
  - SKIN LESION [None]
  - PAIN OF SKIN [None]
  - PAIN [None]
  - OEDEMA PERIPHERAL [None]
